FAERS Safety Report 14089455 (Version 3)
Quarter: 2020Q4

REPORT INFORMATION
  Report Type: Report from Study
  Country: US (occurrence: US)
  Receive Date: 20171014
  Receipt Date: 20201228
  Transmission Date: 20210113
  Serious: No
  Sender: FDA-Public Use
  Company Number: US-SA-2017SA160664

PATIENT

DRUGS (2)
  1. TERIFLUNOMIDE. [Suspect]
     Active Substance: TERIFLUNOMIDE
     Dosage: 14 MG, QD
     Route: 048
     Dates: start: 20180301
  2. TERIFLUNOMIDE. [Suspect]
     Active Substance: TERIFLUNOMIDE
     Indication: MULTIPLE SCLEROSIS
     Dosage: 14 MG, QD
     Route: 048
     Dates: start: 20170401

REACTIONS (13)
  - Vomiting [Unknown]
  - Balance disorder [Unknown]
  - Throat clearing [Unknown]
  - Drug ineffective [Unknown]
  - Depression [Unknown]
  - Nausea [Unknown]
  - Anxiety [Unknown]
  - Chronic gastritis [Not Recovered/Not Resolved]
  - Gastrooesophageal reflux disease [Unknown]
  - Cognitive disorder [Unknown]
  - Vertigo [Unknown]
  - Abdominal pain upper [Unknown]
  - Gastritis [Unknown]

NARRATIVE: CASE EVENT DATE: 20170816
